FAERS Safety Report 9658802 (Version 2)
Quarter: 2013Q4

REPORT INFORMATION
  Report Type: Spontaneous
  Country: US (occurrence: US)
  Receive Date: 20131030
  Receipt Date: 20131030
  Transmission Date: 20140711
  Serious: No
  Sender: FDA-Public Use
  Company Number: US-PURDUE-USA-2010-0053741

PATIENT
  Age: 55 Year
  Sex: Female

DRUGS (3)
  1. OXYCONTIN (NDA 22-272) [Suspect]
     Indication: FIBROMYALGIA
     Dosage: 120 MG, BID
  2. OXYCONTIN (NDA 22-272) [Suspect]
     Dosage: 80 MG, BID
     Route: 048
     Dates: start: 201010
  3. OXYCONTIN (NDA 22-272) [Suspect]
     Dosage: 80 MG, BID
     Route: 048
     Dates: start: 201104

REACTIONS (11)
  - Drug withdrawal syndrome [Unknown]
  - Quality of life decreased [Unknown]
  - Inadequate analgesia [Not Recovered/Not Resolved]
  - Malaise [Unknown]
  - Medication residue present [Not Recovered/Not Resolved]
  - Headache [Unknown]
  - Constipation [Unknown]
  - Somnolence [Unknown]
  - Gastrointestinal disorder [Unknown]
  - Functional gastrointestinal disorder [Unknown]
  - Abdominal pain [Not Recovered/Not Resolved]
